FAERS Safety Report 8018219-X (Version None)
Quarter: 2011Q4

REPORT INFORMATION
  Report Type: 
  Country: None (occurrence: None)
  Receive Date: 20111228
  Receipt Date: 20111219
  Transmission Date: 20120403
  Serious: Yes (Life-Threatening, Hospitalization)
  Sender: FDA-Public Use
  Company Number: EU-2011-10199

PATIENT
  Age: 36 Year
  Sex: Female

DRUGS (2)
  1. SAMSCA [Suspect]
     Indication: INAPPROPRIATE ANTIDIURETIC HORMONE SECRETION
     Dosage: 7.5 MG MILLIGRAM(S), SINGLE, ORAL
     Route: 048
     Dates: start: 20111013, end: 20111013
  2. HYPERTONIC SALINE SOLUTION (HYPERTONIC SALINE SOLUTION) SOLUTION [Suspect]
     Indication: HYPONATRAEMIA
     Dosage: INTRAVENOUS
     Route: 042
     Dates: start: 20111011, end: 20111013

REACTIONS (8)
  - NERVOUS SYSTEM DISORDER [None]
  - RAPID CORRECTION OF HYPONATRAEMIA [None]
  - WRONG TECHNIQUE IN DRUG USAGE PROCESS [None]
  - HYPONATRAEMIC ENCEPHALOPATHY [None]
  - POLYURIA [None]
  - DEMYELINATION [None]
  - BRADYPHRENIA [None]
  - ENCEPHALOPATHY [None]
